FAERS Safety Report 13341406 (Version 1)
Quarter: 2017Q1

REPORT INFORMATION
  Report Type: Spontaneous
  Country: US (occurrence: US)
  Receive Date: 20170316
  Receipt Date: 20170316
  Transmission Date: 20170428
  Serious: Yes (Other)
  Sender: FDA-Public Use
  Company Number: US-GLAXOSMITHKLINE-US2017GSK036915

PATIENT

DRUGS (1)
  1. REQUIP [Suspect]
     Active Substance: ROPINIROLE HYDROCHLORIDE
     Indication: RESTLESS LEGS SYNDROME
     Dosage: 12 MG, QD
     Dates: start: 2004

REACTIONS (3)
  - Drug dependence [Not Recovered/Not Resolved]
  - Inability to afford medication [Unknown]
  - Condition aggravated [Not Recovered/Not Resolved]
